FAERS Safety Report 11331254 (Version 2)
Quarter: 2015Q3

REPORT INFORMATION
  Report Type: Report from Study
  Country: US (occurrence: US)
  Receive Date: 20150803
  Receipt Date: 20150904
  Transmission Date: 20151125
  Serious: Yes (Hospitalization)
  Sender: FDA-Public Use
  Company Number: PHEH2015US014622

PATIENT
  Age: 65 Year
  Sex: Female
  Weight: 37.24 kg

DRUGS (2)
  1. TOBI [Suspect]
     Active Substance: TOBRAMYCIN
     Indication: BRONCHIECTASIS
     Dosage: 1 DF, BID (300 MG/5ML)
     Route: 055
  2. TOBI [Suspect]
     Active Substance: TOBRAMYCIN
     Indication: PSEUDOMONAS INFECTION

REACTIONS (4)
  - Infective exacerbation of bronchiectasis [Recovering/Resolving]
  - Malaise [Unknown]
  - Off label use [Unknown]
  - Lung infection [Unknown]

NARRATIVE: CASE EVENT DATE: 20150711
